FAERS Safety Report 23507244 (Version 1)
Quarter: 2024Q1

REPORT INFORMATION
  Report Type: Report from Study
  Country: US (occurrence: US)
  Receive Date: 20240209
  Receipt Date: 20240209
  Transmission Date: 20240410
  Serious: Yes (Other)
  Sender: FDA-Public Use
  Company Number: US-EXELIXIS-CABO-23067572

PATIENT
  Age: 75 Year
  Sex: Male

DRUGS (14)
  1. CABOMETYX [Suspect]
     Active Substance: CABOZANTINIB S-MALATE
     Indication: Renal cancer
     Dosage: 40 MG, QD
     Route: 048
     Dates: start: 20230821
  2. CABOMETYX [Suspect]
     Active Substance: CABOZANTINIB S-MALATE
     Indication: Metastases to bone
     Dosage: 20 MG
  3. OPDIVO [Concomitant]
     Active Substance: NIVOLUMAB
  4. ACETAMINOPHEN [Concomitant]
     Active Substance: ACETAMINOPHEN
  5. GABAPENTIN [Concomitant]
     Active Substance: GABAPENTIN
  6. HYDROCODONE [Concomitant]
     Active Substance: HYDROCODONE
  7. LACTULOSE [Concomitant]
     Active Substance: LACTULOSE
  8. LEVOCETIRIZINE [Concomitant]
     Active Substance: LEVOCETIRIZINE
  9. LINZESS [Concomitant]
     Active Substance: LINACLOTIDE
  10. NOVOLOG [Concomitant]
     Active Substance: INSULIN ASPART
  11. ONDANSETRON [Concomitant]
     Active Substance: ONDANSETRON
  12. OXYCODONE HYDROCHLORIDE [Concomitant]
     Active Substance: OXYCODONE HYDROCHLORIDE
  13. OZEMPIC [Concomitant]
     Active Substance: SEMAGLUTIDE
  14. TOUJEO [Concomitant]
     Active Substance: INSULIN GLARGINE

REACTIONS (22)
  - Neuropathy peripheral [Not Recovered/Not Resolved]
  - Blood pressure systolic increased [Unknown]
  - Bone cancer [Unknown]
  - Malaise [Not Recovered/Not Resolved]
  - Adverse event [Not Recovered/Not Resolved]
  - Tongue discomfort [Not Recovered/Not Resolved]
  - Oral discomfort [Not Recovered/Not Resolved]
  - Amnesia [Unknown]
  - Contusion [Unknown]
  - Oral pain [Unknown]
  - Nausea [Not Recovered/Not Resolved]
  - Dizziness [Not Recovered/Not Resolved]
  - Asthenia [Not Recovered/Not Resolved]
  - Constipation [Unknown]
  - Fatigue [Not Recovered/Not Resolved]
  - Headache [Unknown]
  - Taste disorder [Unknown]
  - Gait inability [Not Recovered/Not Resolved]
  - Flank pain [Not Recovered/Not Resolved]
  - Brain fog [Not Recovered/Not Resolved]
  - Acne [Unknown]
  - Pharyngeal hypoaesthesia [Unknown]

NARRATIVE: CASE EVENT DATE: 20230801
